FAERS Safety Report 16419691 (Version 1)
Quarter: 2019Q2

REPORT INFORMATION
  Report Type: Spontaneous
  Country: US (occurrence: US)
  Receive Date: 20190612
  Receipt Date: 20190612
  Transmission Date: 20190711
  Serious: No
  Sender: FDA-Public Use
  Company Number: US-ELI_LILLY_AND_COMPANY-US201906002014

PATIENT
  Age: 74 Year
  Sex: Female

DRUGS (1)
  1. TRULICITY [Suspect]
     Active Substance: DULAGLUTIDE
     Indication: DIABETES MELLITUS
     Dosage: 0.75 MG, UNKNOWN
     Route: 058
     Dates: start: 201812

REACTIONS (4)
  - Spinal stenosis [Not Recovered/Not Resolved]
  - Weight decreased [Unknown]
  - Muscular weakness [Not Recovered/Not Resolved]
  - Lymphoedema [Recovering/Resolving]

NARRATIVE: CASE EVENT DATE: 201812
